FAERS Safety Report 13872380 (Version 2)
Quarter: 2017Q3

REPORT INFORMATION
  Report Type: Spontaneous
  Country: US (occurrence: US)
  Receive Date: 20170816
  Receipt Date: 20170911
  Transmission Date: 20171127
  Serious: No
  Sender: FDA-Public Use
  Company Number: US-PFIZER INC-2017351317

PATIENT
  Age: 52 Year
  Sex: Female

DRUGS (4)
  1. FLONASE ALGY [Concomitant]
     Dosage: 50 UG, UNK
  2. IBRANCE [Suspect]
     Active Substance: PALBOCICLIB
     Indication: BREAST CANCER FEMALE
     Dosage: 125 MG, CYCLIC (ONCE DAILY WITH FOOD FOR 21 DAYS, THEN 7 DAYS OFF)
     Route: 048
     Dates: start: 20160418
  3. IBRANCE [Suspect]
     Active Substance: PALBOCICLIB
     Dosage: 125 MG, CYCLIC (ONCE DAILY WITH FOOD FOR 21 DAYS, THEN 7 DAYS OFF)
     Route: 048
     Dates: start: 20160418
  4. FLUVIRIN /01389804/ [Concomitant]
     Dosage: UNK
     Dates: start: 2015, end: 2016

REACTIONS (1)
  - Constipation [Not Recovered/Not Resolved]
